FAERS Safety Report 6241657-2 (Version None)
Quarter: 2009Q2

REPORT INFORMATION
  Report Type: 
  Country: None (occurrence: None)
  Receive Date: 20090623
  Receipt Date: 20061121
  Transmission Date: 20091009
  Serious: Yes (Hospitalization)
  Sender: FDA-Public Use
  Company Number: TR-ROCHE-472109

PATIENT
  Age: 38 Year
  Sex: Male

DRUGS (2)
  1. INTERFERON ALFA [Suspect]
     Route: 065
  2. LAMIVUDINE [Concomitant]

REACTIONS (5)
  - BASEDOW'S DISEASE [None]
  - BLOOD CREATINE PHOSPHOKINASE INCREASED [None]
  - HYPOKALAEMIA [None]
  - MUSCULAR WEAKNESS [None]
  - THYROTOXIC PERIODIC PARALYSIS [None]
